FAERS Safety Report 6337777-4 (Version None)
Quarter: 2009Q3

REPORT INFORMATION
  Report Type: 
  Country: None (occurrence: None)
  Receive Date: 20090902
  Receipt Date: 20090901
  Transmission Date: 20100115
  Serious: Yes (Other)
  Sender: FDA-Public Use
  Company Number: A0805321A

PATIENT
  Age: 50 Year
  Sex: Female

DRUGS (1)
  1. ALLI [Suspect]
     Indication: WEIGHT LOSS DIET
     Route: 048
     Dates: start: 20080101

REACTIONS (7)
  - COLITIS [None]
  - EATING DISORDER [None]
  - ENTEROCOLITIS [None]
  - FAECES DISCOLOURED [None]
  - PAIN [None]
  - PANCREATITIS [None]
  - VOMITING [None]
